FAERS Safety Report 14266967 (Version 1)
Quarter: 2017Q4

REPORT INFORMATION
  Report Type: Spontaneous
  Country: ES (occurrence: ES)
  Receive Date: 20171211
  Receipt Date: 20171211
  Transmission Date: 20180321
  Serious: No
  Sender: FDA-Public Use
  Company Number: ES-LUPIN PHARMACEUTICALS INC.-2017-05043

PATIENT
  Age: 14 Month
  Sex: Male

DRUGS (3)
  1. SIROLIMUS. [Interacting]
     Active Substance: SIROLIMUS
     Indication: VASCULAR MALFORMATION
     Dosage: 0.8 MG/M2, EVERY 12 HRS
     Route: 065
  2. SIROLIMUS. [Interacting]
     Active Substance: SIROLIMUS
     Dosage: 0.4 MG/M2, EVERY 12 HRS
     Route: 065
  3. AZITHROMYCIN ANHYDROUS. [Suspect]
     Active Substance: AZITHROMYCIN ANHYDROUS
     Indication: PRODUCT USED FOR UNKNOWN INDICATION
     Dosage: UNK
     Route: 065

REACTIONS (2)
  - Drug level decreased [Recovered/Resolved]
  - Drug interaction [Unknown]
